FAERS Safety Report 23142514 (Version 1)
Quarter: 2023Q4

REPORT INFORMATION
  Report Type: Spontaneous
  Country: US (occurrence: US)
  Receive Date: 20231103
  Receipt Date: 20231103
  Transmission Date: 20240110
  Serious: No
  Sender: FDA-Public Use
  Company Number: US-drreddys-LIT/USA/23/0179117

PATIENT
  Sex: Female

DRUGS (3)
  1. DOXYCYCLINE [Suspect]
     Active Substance: DOXYCYCLINE
     Indication: Granuloma skin
  2. ALLOPURINOL [Suspect]
     Active Substance: ALLOPURINOL
     Indication: Granuloma skin
  3. HYDROXYCHLOROQUINE [Suspect]
     Active Substance: HYDROXYCHLOROQUINE
     Indication: Granuloma skin

REACTIONS (1)
  - Drug ineffective for unapproved indication [Unknown]
